FAERS Safety Report 7210252-0 (Version None)
Quarter: 2010Q4

REPORT INFORMATION
  Report Type: 
  Country: None (occurrence: None)
  Receive Date: 20101223
  Receipt Date: 20101209
  Transmission Date: 20110411
  Serious: Yes (Other)
  Sender: FDA-Public Use
  Company Number: 023551

PATIENT
  Age: 30 Year
  Sex: Female

DRUGS (1)
  1. CIMZIA [Suspect]
     Indication: CROHN'S DISEASE
     Dosage: 400 MG 1X/4 WEEKS SUBCUTANEOUS
     Route: 058

REACTIONS (6)
  - COUGH [None]
  - HISTOPLASMOSIS [None]
  - MALAISE [None]
  - NIGHT SWEATS [None]
  - ORAL HERPES [None]
  - PYREXIA [None]
